FAERS Safety Report 14351650 (Version 8)
Quarter: 2019Q4

REPORT INFORMATION
  Report Type: Report from Study
  Country: DE (occurrence: DE)
  Receive Date: 20180104
  Receipt Date: 20191129
  Transmission Date: 20200122
  Serious: Yes (Life-Threatening, Hospitalization, Other)
  Sender: FDA-Public Use
  Company Number: PHHY2017DE147094

PATIENT
  Age: 60 Year
  Sex: Male
  Weight: 70 kg

DRUGS (14)
  1. VOTRIENT [Suspect]
     Active Substance: PAZOPANIB HYDROCHLORIDE
     Dosage: 400 MG, QD
     Route: 048
     Dates: start: 20171020, end: 20180404
  2. VOTRIENT [Suspect]
     Active Substance: PAZOPANIB HYDROCHLORIDE
     Dosage: 400 MG, QD
     Route: 048
     Dates: start: 20180531, end: 20180725
  3. VOTRIENT [Suspect]
     Active Substance: PAZOPANIB HYDROCHLORIDE
     Dosage: 400 MG, QD
     Route: 048
     Dates: start: 20190513, end: 20190922
  4. VOTRIENT [Suspect]
     Active Substance: PAZOPANIB HYDROCHLORIDE
     Indication: METASTATIC RENAL CELL CARCINOMA
     Dosage: 800 MG, QD
     Route: 048
     Dates: start: 20170829, end: 20170925
  5. VOTRIENT [Suspect]
     Active Substance: PAZOPANIB HYDROCHLORIDE
     Dosage: 400 MG, QD
     Route: 048
     Dates: start: 20180726, end: 20190512
  6. METFORMIN [Concomitant]
     Active Substance: METFORMIN HYDROCHLORIDE
     Indication: TYPE 2 DIABETES MELLITUS
     Dosage: 833 MG, TID
     Route: 048
     Dates: start: 1997
  7. CLEXANE [Concomitant]
     Active Substance: ENOXAPARIN SODIUM
     Indication: NEPHRECTOMY
     Dosage: 20 MG, UNK
     Route: 048
     Dates: start: 20170810
  8. DIAMOX SEQUELS [Concomitant]
     Active Substance: ACETAZOLAMIDE
     Indication: TYPE 2 DIABETES MELLITUS
     Dosage: 30 MG, QD
     Route: 048
     Dates: start: 1997
  9. CLEXANE [Concomitant]
     Active Substance: ENOXAPARIN SODIUM
     Dosage: 40 MG, QD (20 MG/-40 MG/-40 MG DUO/-20 MG PRAXIS/-40 MG PRAXIS INJEKTIONSL?SUNG)
     Route: 048
     Dates: start: 20170810, end: 20170829
  10. DIAMICRON [Concomitant]
     Active Substance: GLICLAZIDE
     Indication: TYPE 2 DIABETES MELLITUS
     Dosage: UNK
     Route: 065
  11. DUO [Concomitant]
     Indication: PRODUCT USED FOR UNKNOWN INDICATION
     Dosage: 20 MG, UNK
     Route: 065
  12. PRAXIS [Concomitant]
     Indication: PRODUCT USED FOR UNKNOWN INDICATION
     Dosage: 40 MG, QD
     Route: 065
     Dates: start: 20170810, end: 20170829
  13. ENALAPRIL [Concomitant]
     Active Substance: ENALAPRIL
     Indication: HYPERTENSION
     Dosage: 10 MG, BID
     Route: 048
     Dates: start: 20170801, end: 20171218
  14. ENALAPRIL [Concomitant]
     Active Substance: ENALAPRIL
     Indication: HYPERCREATININAEMIA
     Dosage: 10 MG, QD
     Route: 048
     Dates: start: 20171219

REACTIONS (20)
  - Dyspnoea [Recovered/Resolved]
  - Pleural effusion [Recovered/Resolved]
  - Lipoma [Not Recovered/Not Resolved]
  - Blood alkaline phosphatase increased [Recovered/Resolved]
  - Fatigue [Recovered/Resolved]
  - Cerebral haemorrhage [Unknown]
  - Respiratory disorder [Recovered/Resolved]
  - Type 2 diabetes mellitus [Not Recovered/Not Resolved]
  - Dyspnoea [Recovered/Resolved]
  - Febrile infection [Recovered/Resolved]
  - Muscle strain [Recovered/Resolved]
  - Metastases to central nervous system [Unknown]
  - Respiratory disorder [Recovered/Resolved]
  - Transaminases increased [Recovered/Resolved]
  - Gamma-glutamyltransferase increased [Recovering/Resolving]
  - Pneumonia [Recovered/Resolved]
  - Hypercreatininaemia [Not Recovered/Not Resolved]
  - Ageusia [Recovered/Resolved]
  - Pruritus [Recovered/Resolved]
  - Decreased appetite [Recovered/Resolved]

NARRATIVE: CASE EVENT DATE: 20170901
